FAERS Safety Report 4544180-6 (Version None)
Quarter: 2005Q1

REPORT INFORMATION
  Report Type: 
  Country: None (occurrence: None)
  Receive Date: 20050104
  Receipt Date: 20041230
  Transmission Date: 20050727
  Serious: Yes (Hospitalization)
  Sender: FDA-Public Use
  Company Number: PHBS2004CH17454

PATIENT
  Age: 44 Year
  Sex: Male

DRUGS (5)
  1. ASPIRIN [Concomitant]
  2. PRAVASTATIN SODIUM [Concomitant]
  3. PLAVIX [Concomitant]
  4. ANTIHYPERTENSIVES [Concomitant]
  5. LEPONEX [Suspect]
     Indication: SCHIZOPHRENIA
     Dosage: 275 MG/D
     Route: 065

REACTIONS (2)
  - CEREBROVASCULAR ACCIDENT [None]
  - MYOCARDIAL INFARCTION [None]
